FAERS Safety Report 18882809 (Version 2)
Quarter: 2021Q1

REPORT INFORMATION
  Report Type: Spontaneous
  Country: DE (occurrence: DE)
  Receive Date: 20210212
  Receipt Date: 20210312
  Transmission Date: 20210420
  Serious: Yes (Other)
  Sender: FDA-Public Use
  Company Number: DE-TEVA-2021-DE-1876697

PATIENT
  Age: 56 Year
  Sex: Male
  Weight: 95 kg

DRUGS (8)
  1. VALSARTAN COMP. ABZ 160 MG/25 MG [Suspect]
     Active Substance: HYDROCHLOROTHIAZIDE\VALSARTAN
     Dosage: 1 DOSAGE FORMS DAILY; 1 DF CONTAINS 160 MG VALSARTAN AND 25 MG HYDROCHLOROTHIAZIDE
     Route: 048
     Dates: start: 201710, end: 201812
  2. VALSARTAN HCT 160 MG / 25 MG STADAPHARM [Suspect]
     Active Substance: HYDROCHLOROTHIAZIDE\VALSARTAN
     Dosage: 1 DOSAGE FORMS DAILY;
     Route: 048
     Dates: start: 201604, end: 201609
  3. VALSARTAN HCT 160 MG / 25 MG STADAPHARM [Suspect]
     Active Substance: HYDROCHLOROTHIAZIDE\VALSARTAN
     Indication: HYPERTENSION
     Dosage: 1 DOSAGE FORMS DAILY;
     Route: 048
     Dates: start: 201411, end: 201510
  4. VALSACOR COMP. 160 MG / 25 MG TAD [Suspect]
     Active Substance: HYDROCHLOROTHIAZIDE\VALSARTAN
     Dosage: 1 DOSAGE FORMS DAILY;
     Route: 048
     Dates: start: 201706, end: 201710
  5. VALSACOR COMP. 160 MG / 25 MG TAD [Suspect]
     Active Substance: HYDROCHLOROTHIAZIDE\VALSARTAN
     Dosage: 1 DOSAGE FORMS DAILY;
     Route: 048
     Dates: start: 201812
  6. VALSACOR COMP. 160 MG / 25 MG TAD [Suspect]
     Active Substance: HYDROCHLOROTHIAZIDE\VALSARTAN
     Indication: HYPERTENSION
     Dosage: 1 DOSAGE FORMS DAILY;
     Route: 048
     Dates: start: 201510, end: 201604
  7. VALSACOR COMP. 160 MG / 25 MG TAD [Suspect]
     Active Substance: HYDROCHLOROTHIAZIDE\VALSARTAN
     Dosage: 1 DOSAGE FORMS DAILY;
     Route: 048
     Dates: start: 201609, end: 201611
  8. VALSARTAN COMP. ABZ 160 MG/25 MG [Suspect]
     Active Substance: HYDROCHLOROTHIAZIDE\VALSARTAN
     Indication: HYPERTENSION
     Dosage: 1 DOSAGE FORMS DAILY; 1 DF CONTAINS 160 MG VALSARTAN AND 25 MG HYDROCHLOROTHIAZIDE
     Route: 048
     Dates: start: 201611, end: 201706

REACTIONS (4)
  - Basal cell carcinoma [Recovered/Resolved]
  - Product impurity [Unknown]
  - Emotional distress [Unknown]
  - Impaired quality of life [Unknown]

NARRATIVE: CASE EVENT DATE: 201802
